FAERS Safety Report 9105641 (Version 1)
Quarter: 2013Q1

REPORT INFORMATION
  Report Type: Spontaneous
  Country: US (occurrence: US)
  Receive Date: 20130220
  Receipt Date: 20130220
  Transmission Date: 20140127
  Serious: Yes (Hospitalization)
  Sender: FDA-Public Use
  Company Number: US-GENZYME-FABR-1003038

PATIENT
  Sex: Female
  Weight: 105 kg

DRUGS (3)
  1. FABRAZYME [Suspect]
     Indication: FABRY^S DISEASE
     Dosage: 1 MG/KG, Q2W
     Route: 042
     Dates: start: 200709
  2. XOLAIR [Concomitant]
     Indication: ASTHMA
     Dosage: UNK
     Route: 065
  3. CORTICOSTEROIDS [Concomitant]
     Indication: ADRENAL INSUFFICIENCY
     Dosage: UNK
     Route: 065

REACTIONS (4)
  - Device related infection [Not Recovered/Not Resolved]
  - Staphylococcal infection [Not Recovered/Not Resolved]
  - Clostridial infection [Not Recovered/Not Resolved]
  - Device related infection [Not Recovered/Not Resolved]
